FAERS Safety Report 5344962-7 (Version None)
Quarter: 2007Q2

REPORT INFORMATION
  Report Type: 
  Country: None (occurrence: None)
  Receive Date: 20070416
  Receipt Date: 20061215
  Transmission Date: 20071010
  Serious: No
  Sender: FDA-Public Use
  Company Number: 2006SP004428

PATIENT
  Age: 75 Year
  Sex: Male
  Weight: 106.5953 kg

DRUGS (4)
  1. LUNESTA [Suspect]
     Indication: INITIAL INSOMNIA
     Dosage: 3 MG;HS;ORAL
     Route: 048
     Dates: start: 20060701
  2. LESCOL [Concomitant]
  3. CLONAZEPAM [Concomitant]
  4. LEVOTHYROXINE SODIUM [Concomitant]

REACTIONS (1)
  - INITIAL INSOMNIA [None]
